FAERS Safety Report 13060681 (Version 1)
Quarter: 2016Q4

REPORT INFORMATION
  Report Type: Spontaneous
  Country: GB (occurrence: GB)
  Receive Date: 20161225
  Receipt Date: 20161225
  Transmission Date: 20170207
  Serious: Yes (Other)
  Sender: FDA-Public Use
  Company Number: GB-DEXPHARM-20162467

PATIENT
  Age: 18 Year
  Sex: Male
  Weight: 19 kg

DRUGS (4)
  1. OMEPRAZOLE. [Suspect]
     Active Substance: OMEPRAZOLE
     Dates: start: 20161128
  2. CETIRIZINE [Concomitant]
     Active Substance: CETIRIZINE HYDROCHLORIDE
     Dosage: DAILY DOSE: 1 DF DOSAGE FORM EVERY DAYS
     Dates: start: 20161128
  3. NAPROXEN. [Suspect]
     Active Substance: NAPROXEN
     Dosage: TAKE WITH OR JUST AFTER FOOD
     Dates: start: 20161122
  4. COCODAMOL [Suspect]
     Active Substance: ACETAMINOPHEN\CODEINE PHOSPHATE
     Dosage: TAKE 1 OR 2 FOUR TIMES DAILY.
     Dates: start: 20161122, end: 20161204

REACTIONS (1)
  - Rash [Recovered/Resolved]
